FAERS Safety Report 9890936 (Version 2)
Quarter: 2014Q1

REPORT INFORMATION
  Report Type: Spontaneous
  Country: CA (occurrence: CA)
  Receive Date: 20140212
  Receipt Date: 20140228
  Transmission Date: 20141002
  Serious: Yes (Death, Other)
  Sender: FDA-Public Use
  Company Number: CA-AMGEN-CANSP2014009243

PATIENT
  Age: 53 Year
  Sex: Female
  Weight: 160 kg

DRUGS (2)
  1. NPLATE [Suspect]
     Indication: IMMUNE THROMBOCYTOPENIC PURPURA
     Dosage: 1-10 MG/KG
     Route: 058
     Dates: start: 20120112
  2. CYCLOSPORIN [Concomitant]
     Indication: IMMUNE THROMBOCYTOPENIC PURPURA
     Dosage: UNK
     Route: 048
     Dates: start: 201303, end: 201312

REACTIONS (3)
  - Myelofibrosis [Unknown]
  - Therapeutic response decreased [Unknown]
  - Pulmonary haemorrhage [Fatal]
